FAERS Safety Report 20484047 (Version 1)
Quarter: 2022Q1

REPORT INFORMATION
  Report Type: Spontaneous
  Country: US (occurrence: None)
  Receive Date: 20220216
  Receipt Date: 20220216
  Transmission Date: 20220423
  Serious: Yes (Other)
  Sender: FDA-Public Use
  Company Number: None

PATIENT
  Age: 52 Year
  Sex: Male
  Weight: 81 kg

DRUGS (1)
  1. TIROSINT [Suspect]
     Active Substance: LEVOTHYROXINE SODIUM
     Indication: Thyroid hormone replacement therapy
     Dosage: OTHER STRENGTH : MCG;?FREQUENCY : DAILY;?
     Route: 048
     Dates: start: 20220117, end: 20220214

REACTIONS (8)
  - Product substitution issue [None]
  - Dyspepsia [None]
  - Heart rate irregular [None]
  - Insomnia [None]
  - Anxiety [None]
  - Gastritis [None]
  - Loss of employment [None]
  - Economic problem [None]

NARRATIVE: CASE EVENT DATE: 20220211
